FAERS Safety Report 8582667-X (Version None)
Quarter: 2012Q3

REPORT INFORMATION
  Report Type: 
  Country: None (occurrence: None)
  Receive Date: 20120809
  Receipt Date: 20120807
  Transmission Date: 20120928
  Serious: No
  Sender: FDA-Public Use
  Company Number: US-PFIZER INC-2012140351

PATIENT
  Age: 47 Year
  Sex: Female
  Weight: 124 kg

DRUGS (4)
  1. LOPERAMIDE HYDROCHLORIDE [Suspect]
     Indication: IRRITABLE BOWEL SYNDROME
     Dosage: SEVEN TABLETS, AS NEEDED
     Route: 048
     Dates: start: 20120101
  2. GENOTROPIN [Suspect]
     Indication: TURNER'S SYNDROME
  3. LOPERAMIDE HYDROCHLORIDE [Suspect]
     Indication: DIARRHOEA
  4. GENOTROPIN [Suspect]
     Indication: GROWTH HORMONE DEFICIENCY
     Dosage: DAILY
     Dates: start: 20120101

REACTIONS (4)
  - INSOMNIA [None]
  - DIARRHOEA [None]
  - FATIGUE [None]
  - IRRITABLE BOWEL SYNDROME [None]
